FAERS Safety Report 8412847 (Version 3)
Quarter: 2014Q2

REPORT INFORMATION
  Report Type: Spontaneous
  Country: DE (occurrence: DE)
  Receive Date: 20120217
  Receipt Date: 20140515
  Transmission Date: 20141212
  Serious: Yes (Congenital Anomaly, Other)
  Sender: FDA-Public Use
  Company Number: PHHY2012DE013274

PATIENT
  Sex: 0

DRUGS (4)
  1. CICLOSPORIN [Suspect]
     Route: 064
  2. MYCOPHENOLATE MOFETIL [Suspect]
     Dosage: (MARTERNAL DOSE: 1G/DAY)
     Route: 064
  3. PREDNISONE [Suspect]
     Route: 064
  4. URSODEOXYCHOLIC ACID [Suspect]
     Route: 064

REACTIONS (4)
  - Atrial septal defect [Unknown]
  - Brain malformation [Unknown]
  - Premature baby [Unknown]
  - Foetal exposure during pregnancy [Unknown]
